FAERS Safety Report 9100342 (Version 4)
Quarter: 2015Q4

REPORT INFORMATION
  Report Type: Spontaneous
  Country: JP (occurrence: JP)
  Receive Date: 20130215
  Receipt Date: 20151211
  Transmission Date: 20160305
  Serious: Yes (Death, Hospitalization)
  Sender: FDA-Public Use
  Company Number: PHHY2013JP009343

PATIENT
  Age: 77 Year
  Sex: Male
  Weight: 61 kg

DRUGS (2)
  1. TASIGNA [Suspect]
     Active Substance: NILOTINIB
     Indication: BLAST CRISIS IN MYELOGENOUS LEUKAEMIA
     Dosage: 800 MG, QD
     Route: 048
     Dates: start: 20130125, end: 20130129
  2. LIRAGLUTIDE [Concomitant]
     Active Substance: LIRAGLUTIDE
     Indication: DIABETES MELLITUS
     Route: 058
     Dates: start: 201012

REACTIONS (5)
  - Headache [Fatal]
  - Extradural haematoma [Fatal]
  - Hemiplegia [Fatal]
  - Disease progression [Fatal]
  - Brain herniation [Fatal]

NARRATIVE: CASE EVENT DATE: 20130125
